FAERS Safety Report 4951530-5 (Version None)
Quarter: 2006Q1

REPORT INFORMATION
  Report Type: 
  Country: None (occurrence: None)
  Receive Date: 20060317
  Receipt Date: 20060307
  Transmission Date: 20060701
  Serious: Yes (Disabling, Other)
  Sender: FDA-Public Use
  Company Number: 2006033672

PATIENT
  Age: 80 Year
  Sex: Female
  Weight: 73.9363 kg

DRUGS (3)
  1. LIPITOR [Suspect]
     Indication: ILL-DEFINED DISORDER
     Dosage: 40 MG (40  MG, 1 IN 1 D)
  2. TENORMIN [Concomitant]
  3. DIAZIDE (GLICLAZIDE) [Concomitant]

REACTIONS (6)
  - BLINDNESS UNILATERAL [None]
  - CAREGIVER [None]
  - OCULAR VASCULAR DISORDER [None]
  - QUADRUPLE VESSEL BYPASS GRAFT [None]
  - STRESS [None]
  - TREATMENT NONCOMPLIANCE [None]
